FAERS Safety Report 8936026 (Version 1)
Quarter: 2012Q4

REPORT INFORMATION
  Report Type: Report from Study
  Country: US (occurrence: US)
  Receive Date: 20121130
  Receipt Date: 20121130
  Transmission Date: 20130627
  Serious: No
  Sender: FDA-Public Use
  Company Number: US-ABBOTT-12P-163-0984040-00

PATIENT
  Age: 57 Year
  Sex: Male

DRUGS (2)
  1. ANDROGEL [Suspect]
     Indication: BLOOD TESTOSTERONE DECREASED
     Dosage: 2 pumps
     Route: 061
     Dates: start: 20120724, end: 20120905
  2. ANDROGEL [Suspect]
     Dosage: 3 pumps
     Route: 061
     Dates: start: 20120906

REACTIONS (1)
  - Blood testosterone decreased [Not Recovered/Not Resolved]
